FAERS Safety Report 22374963 (Version 1)
Quarter: 2023Q2

REPORT INFORMATION
  Report Type: Spontaneous
  Country: RU (occurrence: None)
  Receive Date: 20230527
  Receipt Date: 20230527
  Transmission Date: 20230722
  Serious: Yes (Other)
  Sender: FDA-Public Use
  Company Number: RU-ROCHE-3355255

PATIENT
  Age: 10 Year

DRUGS (3)
  1. TOCILIZUMAB [Suspect]
     Active Substance: TOCILIZUMAB
     Indication: Product used for unknown indication
     Route: 041
  2. DEXAMETHASONE [Concomitant]
     Active Substance: DEXAMETHASONE
  3. METHYLPREDNISOLONE [Concomitant]
     Active Substance: METHYLPREDNISOLONE

REACTIONS (14)
  - Multisystem inflammatory syndrome [Unknown]
  - Haemophagocytic lymphohistiocytosis [Unknown]
  - Cell death [Unknown]
  - Cholestasis [Unknown]
  - Leukopenia [Unknown]
  - Platelet count decreased [Unknown]
  - Hypofibrinogenaemia [Unknown]
  - Hepatomegaly [Unknown]
  - Splenomegaly [Unknown]
  - Body temperature increased [Unknown]
  - Serum ferritin increased [Unknown]
  - Hypercoagulation [Unknown]
  - COVID-19 [Unknown]
  - Haemostasis [Unknown]
